FAERS Safety Report 11772978 (Version 2)
Quarter: 2015Q4

REPORT INFORMATION
  Report Type: Spontaneous
  Country: IT (occurrence: IT)
  Receive Date: 20151124
  Receipt Date: 20151202
  Transmission Date: 20160304
  Serious: Yes (Other)
  Sender: FDA-Public Use
  Company Number: IT-SA-2015SA184619

PATIENT
  Age: 70 Year
  Sex: Male

DRUGS (5)
  1. MESTINON [Suspect]
     Active Substance: PYRIDOSTIGMINE BROMIDE
     Route: 048
     Dates: start: 20151019
  2. LASIX [Suspect]
     Active Substance: FUROSEMIDE
     Route: 042
     Dates: start: 20151019
  3. URBASON [Suspect]
     Active Substance: METHYLPREDNISOLONE
     Route: 042
     Dates: start: 20151031
  4. CLEXANE [Suspect]
     Active Substance: ENOXAPARIN SODIUM
     Route: 058
     Dates: start: 20151020
  5. PANTORC [Suspect]
     Active Substance: PANTOPRAZOLE SODIUM
     Route: 048
     Dates: start: 20151019

REACTIONS (2)
  - Amylase increased [Unknown]
  - Respiratory failure [Unknown]

NARRATIVE: CASE EVENT DATE: 20151104
